FAERS Safety Report 7864335-2 (Version None)
Quarter: 2011Q4

REPORT INFORMATION
  Report Type: 
  Country: None (occurrence: None)
  Receive Date: 20111028
  Receipt Date: 20111016
  Transmission Date: 20120403
  Serious: Yes (Hospitalization)
  Sender: FDA-Public Use
  Company Number: JP-ELI_LILLY_AND_COMPANY-JP201108000537

PATIENT
  Age: 75 Year
  Sex: Female

DRUGS (2)
  1. FORTEO [Suspect]
     Dosage: UNK
     Route: 058
     Dates: start: 20110101, end: 20110101
  2. FORTEO [Suspect]
     Dosage: UNK
     Route: 058

REACTIONS (3)
  - FALL [None]
  - NASOPHARYNGITIS [None]
  - DECREASED APPETITE [None]
